FAERS Safety Report 14803718 (Version 2)
Quarter: 2018Q2

REPORT INFORMATION
  Report Type: Spontaneous
  Country: NL (occurrence: NL)
  Receive Date: 20180425
  Receipt Date: 20180510
  Transmission Date: 20180711
  Serious: Yes (Other)
  Sender: FDA-Public Use
  Company Number: NL-ASTELLAS-2018US019456

PATIENT
  Sex: Female

DRUGS (3)
  1. SOLIFENACIN [Suspect]
     Active Substance: SOLIFENACIN
     Route: 048
     Dates: end: 201710
  2. SOLIFENACIN [Suspect]
     Active Substance: SOLIFENACIN
     Indication: HYPERTONIC BLADDER
     Route: 048
     Dates: start: 201709
  3. VOLCOLON [Concomitant]
     Indication: FAECES SOFT
     Dosage: UNK UNK, UNKNOWN FREQ.
     Route: 065

REACTIONS (8)
  - Mental disability [Not Recovered/Not Resolved]
  - Weight decreased [Recovered/Resolved]
  - Constipation [Recovering/Resolving]
  - Mental disorder [Recovering/Resolving]
  - Thinking abnormal [Recovering/Resolving]
  - Vision blurred [Recovering/Resolving]
  - Hallucination [Recovering/Resolving]
  - Decreased appetite [Recovering/Resolving]
